FAERS Safety Report 5358507-9 (Version None)
Quarter: 2007Q2

REPORT INFORMATION
  Report Type: 
  Country: None (occurrence: None)
  Receive Date: 20070613
  Receipt Date: 20070613
  Transmission Date: 20071010
  Serious: No
  Sender: FDA-Public Use
  Company Number: None

PATIENT
  Age: 49 Year
  Sex: Female
  Weight: 56.246 kg

DRUGS (2)
  1. LEVAQUIN [Suspect]
     Indication: POST PROCEDURAL INFECTION
     Dosage: 500MG  ONCE A DAY  PO
     Route: 048
     Dates: start: 20070522, end: 20070524
  2. LEVAQUIN [Suspect]
     Indication: INFECTION
     Dosage: 500MG ONCE A DAY PO
     Route: 048
     Dates: start: 20070604, end: 20070610

REACTIONS (5)
  - ARTHRALGIA [None]
  - EAR PAIN [None]
  - HYPOAESTHESIA [None]
  - INSOMNIA [None]
  - PARAESTHESIA [None]
